FAERS Safety Report 8370513-9 (Version None)
Quarter: 2012Q2

REPORT INFORMATION
  Report Type: 
  Country: None (occurrence: None)
  Receive Date: 20120518
  Receipt Date: 20120515
  Transmission Date: 20120825
  Serious: Yes (Other)
  Sender: FDA-Public Use
  Company Number: US-PFIZER INC-2012114810

PATIENT
  Sex: Female
  Weight: 70.975 kg

DRUGS (9)
  1. OXYCODONE [Concomitant]
     Dosage: UNK
  2. LYRICA [Suspect]
     Dosage: 600 MG, IN A DAY
     Route: 048
  3. AMBIEN [Concomitant]
     Indication: SLEEP DISORDER
     Dosage: UNK
  4. LYRICA [Suspect]
     Indication: FIBROMYALGIA
     Dosage: 150 MG, 1X/DAY
     Route: 048
     Dates: start: 20070101
  5. LYRICA [Suspect]
     Dosage: 300 MG, 1X/DAY
     Route: 048
  6. LYRICA [Suspect]
     Dosage: 450 MG, IN A DAY
     Route: 048
  7. CYMBALTA [Concomitant]
     Dosage: UNK
  8. LISINOPRIL [Concomitant]
     Dosage: UNK
  9. XANAX [Concomitant]
     Dosage: UNK

REACTIONS (12)
  - NECK PAIN [None]
  - BACK PAIN [None]
  - ABDOMINAL PAIN UPPER [None]
  - WEIGHT INCREASED [None]
  - FEAR [None]
  - NEOPLASM MALIGNANT [None]
  - BURNING SENSATION [None]
  - PAIN IN EXTREMITY [None]
  - FIBROMYALGIA [None]
  - DRUG WITHDRAWAL SYNDROME [None]
  - INCORRECT DOSE ADMINISTERED [None]
  - ARTHRALGIA [None]
